FAERS Safety Report 9407948 (Version 1)
Quarter: 2013Q3

REPORT INFORMATION
  Report Type: Spontaneous
  Country: US (occurrence: None)
  Receive Date: 20130717
  Receipt Date: 20130717
  Transmission Date: 20140515
  Serious: No
  Sender: FDA-Public Use
  Company Number: None

PATIENT
  Age: 62 Year
  Sex: Male
  Weight: 97.52 kg

DRUGS (1)
  1. HUMIRA [Suspect]
     Indication: PSORIASIS
     Dosage: 40 MG SUBQ Q2WKS
     Route: 058
     Dates: start: 20120123, end: 20130521

REACTIONS (5)
  - Hiccups [None]
  - Vomiting [None]
  - Pyrexia [None]
  - Fatigue [None]
  - Nausea [None]
